FAERS Safety Report 8854418 (Version 1)
Quarter: 2012Q4

REPORT INFORMATION
  Report Type: Report from Study
  Country: SI (occurrence: SI)
  Receive Date: 20121023
  Receipt Date: 20121023
  Transmission Date: 20130627
  Serious: Yes (Life-Threatening)
  Sender: FDA-Public Use
  Company Number: SI-ROCHE-1147972

PATIENT
  Age: 70 Year
  Sex: Male
  Weight: 61 kg

DRUGS (4)
  1. BEVACIZUMAB [Suspect]
     Indication: RECTAL CANCER METASTATIC
     Route: 042
     Dates: start: 20090807, end: 20100603
  2. CPT-11 [Concomitant]
     Indication: RECTAL CANCER METASTATIC
     Route: 065
     Dates: start: 20100326, end: 20100603
  3. 5-FLUOROURACIL [Concomitant]
     Indication: RECTAL CANCER METASTATIC
     Route: 065
     Dates: start: 20100326, end: 20100603
  4. LEUCOVORIN [Concomitant]
     Indication: RECTAL CANCER METASTATIC
     Route: 065
     Dates: start: 20100326, end: 20100603

REACTIONS (1)
  - Pulmonary oedema [Recovered/Resolved]
